APPROVED DRUG PRODUCT: LEVONORGESTREL
Active Ingredient: LEVONORGESTREL
Strength: 1.5MG
Dosage Form/Route: TABLET;ORAL
Application: A219102 | Product #001
Applicant: ANNORA PHARMA PRIVATE LTD
Approved: Sep 30, 2025 | RLD: No | RS: No | Type: OTC